FAERS Safety Report 4645124-9 (Version None)
Quarter: 2005Q2

REPORT INFORMATION
  Report Type: 
  Country: None (occurrence: None)
  Receive Date: 20050426
  Receipt Date: 20050414
  Transmission Date: 20051028
  Serious: Yes (Hospitalization)
  Sender: FDA-Public Use
  Company Number: US-GLAXOSMITHKLINE-A0554219A

PATIENT
  Age: 45 Year
  Sex: Male

DRUGS (2)
  1. BEXXAR [Suspect]
     Indication: NON-HODGKIN'S LYMPHOMA
     Route: 042
     Dates: start: 20050401, end: 20050408
  2. IODINE [Concomitant]

REACTIONS (6)
  - ARTHRALGIA [None]
  - ERYTHEMA [None]
  - HYPOTENSION [None]
  - PYREXIA [None]
  - RASH [None]
  - SERUM SICKNESS [None]
